FAERS Safety Report 9121282 (Version 2)
Quarter: 2013Q1

REPORT INFORMATION
  Report Type: Report from Study
  Country: JP (occurrence: JP)
  Receive Date: 20130225
  Receipt Date: 20130328
  Transmission Date: 20140127
  Serious: Yes (Other)
  Sender: FDA-Public Use
  Company Number: JP-ROCHE-1039670

PATIENT
  Age: 74 Year
  Sex: Male
  Weight: 59 kg

DRUGS (11)
  1. METHOXY POLYETHYLENE GLYCOL-EPOETIN BETA [Suspect]
     Indication: NEPHROGENIC ANAEMIA
     Route: 042
     Dates: start: 20111019, end: 20120123
  2. ALFAROL [Concomitant]
     Indication: HYPERPARATHYROIDISM SECONDARY
     Route: 048
     Dates: start: 20091120
  3. ALFAROL [Concomitant]
     Route: 048
  4. BAYASPIRIN [Concomitant]
     Indication: CEREBRAL INFARCTION
     Route: 048
     Dates: start: 20091120
  5. BAYASPIRIN [Concomitant]
     Route: 048
  6. BLOPRESS [Concomitant]
     Indication: HYPERTENSION
     Route: 048
     Dates: start: 20091120
  7. BLOPRESS [Concomitant]
     Route: 048
  8. LASIX [Concomitant]
     Indication: HYPERTENSION
     Route: 048
     Dates: start: 20091120
  9. LASIX [Concomitant]
     Route: 048
  10. CALTAN [Concomitant]
     Indication: HYPERPHOSPHATAEMIA
     Route: 048
     Dates: start: 20091120
  11. CALTAN [Concomitant]
     Route: 048

REACTIONS (2)
  - Haemoglobin decreased [Recovered/Resolved]
  - Anaemia [Unknown]
